FAERS Safety Report 8141675-3 (Version None)
Quarter: 2012Q1

REPORT INFORMATION
  Report Type: 
  Country: None (occurrence: None)
  Receive Date: 20120216
  Receipt Date: 20120209
  Transmission Date: 20120608
  Serious: Yes (Other)
  Sender: FDA-Public Use
  Company Number: PHHY2011US09355

PATIENT
  Sex: Female

DRUGS (5)
  1. EXTAVIA [Suspect]
     Dosage: 0.25 MG, QOD
     Route: 058
     Dates: start: 20110129
  2. EXTAVIA [Suspect]
     Indication: MULTIPLE SCLEROSIS
     Dosage: 0.25 MG, QOD
     Route: 058
     Dates: start: 20110124
  3. ACETAMINOPHEN [Concomitant]
     Dosage: UNK UKN, UNK
  4. EXTAVIA [Suspect]
     Dosage: 0.125 MG, QOD
     Route: 058
     Dates: start: 20110302
  5. LYRICA [Concomitant]

REACTIONS (13)
  - FEELING ABNORMAL [None]
  - DEPRESSION [None]
  - FATIGUE [None]
  - TEMPERATURE INTOLERANCE [None]
  - SLUGGISHNESS [None]
  - HEADACHE [None]
  - RHINORRHOEA [None]
  - BACK PAIN [None]
  - PYREXIA [None]
  - ASTHENIA [None]
  - SPINAL COLUMN INJURY [None]
  - MUSCULAR WEAKNESS [None]
  - MUSCULOSKELETAL DISCOMFORT [None]
